FAERS Safety Report 11114005 (Version 2)
Quarter: 2015Q2

REPORT INFORMATION
  Report Type: Spontaneous
  Country: IT (occurrence: IT)
  Receive Date: 20150514
  Receipt Date: 20150526
  Transmission Date: 20150821
  Serious: Yes (Hospitalization)
  Sender: FDA-Public Use
  Company Number: IT-PFIZER INC-2015163260

PATIENT
  Age: 21 Year
  Sex: Male

DRUGS (4)
  1. LEXOTAN [Suspect]
     Active Substance: BROMAZEPAM
     Dosage: 20 ML, UNK
     Route: 048
     Dates: start: 20150325, end: 20150325
  2. ZOLOFT [Suspect]
     Active Substance: SERTRALINE HYDROCHLORIDE
     Dosage: 125 MG (50+75 MG), DAILY
  3. ZOLOFT [Suspect]
     Active Substance: SERTRALINE HYDROCHLORIDE
     Dosage: 350 MG, TOTAL
     Route: 048
     Dates: start: 20150325, end: 20150325
  4. LEXOTAN [Suspect]
     Active Substance: BROMAZEPAM
     Dosage: 10 DROPS

REACTIONS (2)
  - Sopor [Recovered/Resolved]
  - Drug abuse [Recovered/Resolved]

NARRATIVE: CASE EVENT DATE: 20150325
